FAERS Safety Report 9282944 (Version 1)
Quarter: 2013Q2

REPORT INFORMATION
  Report Type: Spontaneous
  Country: BR (occurrence: None)
  Receive Date: 20130503
  Receipt Date: 20130503
  Transmission Date: 20140414
  Serious: Yes (Hospitalization, Other)
  Sender: FDA-Public Use
  Company Number: 2013-001347

PATIENT
  Age: 70 Year
  Sex: Female
  Weight: 63.5 kg

DRUGS (8)
  1. ACTONEL [Suspect]
     Indication: OSTEOPENIA
     Route: 048
  2. CRESTOR [Suspect]
     Indication: HYPERTENSION
     Dosage: DOSAGE TAKEN AT NIGHT.
     Route: 048
  3. ALL OTHER THERAPEUTIC PRODUCTS TABLET [Concomitant]
  4. ATACAND (CANDESARTAN CILEXETIL) TABLET [Concomitant]
  5. COLECALCIFEROL (COLECALCIFEROL) [Concomitant]
  6. PURAN T4 (LEVOTHYROXINE SODIUM) [Concomitant]
  7. OMEPRAZOLE (OMEPRAZOLE) [Concomitant]
  8. VITAMIN C/00008001/(ASCORBIC ACID) [Concomitant]

REACTIONS (7)
  - Pancreatitis necrotising [None]
  - Pancreatitis chronic [None]
  - Skin discolouration [None]
  - Platelet count decreased [None]
  - Ovarian cyst [None]
  - Pain [None]
  - Abdominal pain [None]
